FAERS Safety Report 9722858 (Version 1)
Quarter: 2013Q4

REPORT INFORMATION
  Report Type: Spontaneous
  Country: US (occurrence: None)
  Receive Date: 20131127
  Receipt Date: 20131127
  Transmission Date: 20140711
  Serious: Yes (Hospitalization)
  Sender: FDA-Public Use
  Company Number: None

PATIENT
  Age: 66 Year
  Sex: Female

DRUGS (1)
  1. CARVEDILOL [Suspect]
     Route: 048
     Dates: start: 20131115

REACTIONS (3)
  - Dizziness [None]
  - Dizziness [None]
  - Heart rate decreased [None]
